FAERS Safety Report 9051499 (Version 1)
Quarter: 2013Q1

REPORT INFORMATION
  Report Type: Spontaneous
  Country: US (occurrence: US)
  Receive Date: 20130206
  Receipt Date: 20130206
  Transmission Date: 20140127
  Serious: No
  Sender: FDA-Public Use
  Company Number: US-ALLERGAN-1216922US

PATIENT
  Sex: Female

DRUGS (2)
  1. RESTASIS [Suspect]
     Indication: DRY EYE
     Dosage: UNK UNK, PRN
     Route: 047
  2. ALPHAGAN P [Concomitant]
     Indication: INTRAOCULAR PRESSURE INCREASED
     Dosage: 2 GTT, TID
     Route: 047
     Dates: start: 2010

REACTIONS (2)
  - Inappropriate schedule of drug administration [Unknown]
  - Lacrimation increased [Unknown]
